FAERS Safety Report 24733795 (Version 1)
Quarter: 2024Q4

REPORT INFORMATION
  Report Type: Spontaneous
  Country: US (occurrence: US)
  Receive Date: 20241214
  Receipt Date: 20241214
  Transmission Date: 20250115
  Serious: No
  Sender: ALEXION PHARMACEUTICALS
  Company Number: US-AstraZeneca-CH-00765283AP

PATIENT

DRUGS (4)
  1. BYETTA [Suspect]
     Active Substance: EXENATIDE
     Route: 065
  2. BYETTA [Suspect]
     Active Substance: EXENATIDE
     Route: 065
  3. BYETTA [Suspect]
     Active Substance: EXENATIDE
     Route: 065
  4. BYETTA [Suspect]
     Active Substance: EXENATIDE
     Route: 065

REACTIONS (5)
  - Device use issue [Unknown]
  - Injection site pain [Unknown]
  - Wrong technique in product usage process [Unknown]
  - Abdominal tenderness [Unknown]
  - Contusion [Unknown]
